FAERS Safety Report 9532226 (Version 1)
Quarter: 2013Q3

REPORT INFORMATION
  Report Type: Spontaneous
  Country: FR (occurrence: FR)
  Receive Date: 20130918
  Receipt Date: 20130918
  Transmission Date: 20140515
  Serious: Yes (Other)
  Sender: FDA-Public Use
  Company Number: FR-ABBVIE-13P-056-1148043-00

PATIENT
  Age: 57 Year
  Sex: Female

DRUGS (8)
  1. HUMIRA [Suspect]
     Indication: COLITIS ULCERATIVE
     Route: 058
     Dates: start: 201211, end: 20130408
  2. HUMIRA [Suspect]
     Dates: start: 20130711
  3. CORTANCYL [Suspect]
     Indication: COLITIS ULCERATIVE
     Route: 048
     Dates: start: 201304
  4. MESALAZINE [Concomitant]
     Indication: PRODUCT USED FOR UNKNOWN INDICATION
  5. SECTRAL [Concomitant]
     Indication: PRODUCT USED FOR UNKNOWN INDICATION
  6. DELURSAN [Concomitant]
     Indication: PRODUCT USED FOR UNKNOWN INDICATION
  7. RABEPRAZOLE [Concomitant]
     Indication: PRODUCT USED FOR UNKNOWN INDICATION
  8. AUGMENTIN (AMOXICILLIN ACID CLAVULANIC) [Concomitant]
     Indication: PRODUCT USED FOR UNKNOWN INDICATION

REACTIONS (3)
  - Nasal septum perforation [Recovering/Resolving]
  - Sinusitis [Unknown]
  - Nasal disorder [Unknown]
